FAERS Safety Report 7050352-1 (Version None)
Quarter: 2010Q4

REPORT INFORMATION
  Report Type: 
  Country: None (occurrence: None)
  Receive Date: 20101018
  Receipt Date: 20101012
  Transmission Date: 20110411
  Serious: Yes (Other)
  Sender: FDA-Public Use
  Company Number: US-PFIZER INC-2010106272

PATIENT
  Sex: Male

DRUGS (1)
  1. CHANTIX [Suspect]
     Dosage: UNK

REACTIONS (6)
  - AGGRESSION [None]
  - ANGER [None]
  - HOSTILITY [None]
  - HYPERTENSION [None]
  - IRRITABILITY [None]
  - MOOD SWINGS [None]
